FAERS Safety Report 10685007 (Version 1)
Quarter: 2014Q4

REPORT INFORMATION
  Report Type: Spontaneous
  Country: MX (occurrence: MX)
  Receive Date: 20141231
  Receipt Date: 20141231
  Transmission Date: 20150529
  Serious: Yes (Hospitalization)
  Sender: FDA-Public Use
  Company Number: MX-SA-2014SA177684

PATIENT
  Age: 63 Year
  Sex: Female
  Weight: 64 kg

DRUGS (1)
  1. PLAVIX [Suspect]
     Active Substance: CLOPIDOGREL BISULFATE
     Indication: THROMBOSIS PROPHYLAXIS
     Dosage: STRENGTH:75 MG
     Route: 048
     Dates: start: 2009

REACTIONS (3)
  - Fall [Unknown]
  - Neuropathy peripheral [Not Recovered/Not Resolved]
  - Joint injury [Recovered/Resolved]

NARRATIVE: CASE EVENT DATE: 2010
